FAERS Safety Report 5003114-0 (Version None)
Quarter: 2006Q2

REPORT INFORMATION
  Report Type: 
  Country: None (occurrence: None)
  Receive Date: 20060516
  Receipt Date: 20051114
  Transmission Date: 20061013
  Serious: Yes (Hospitalization, Other)
  Sender: FDA-Public Use
  Company Number: US-MERCK-0511USA02806

PATIENT
  Age: 49 Year
  Sex: Female

DRUGS (1)
  1. VIOXX [Suspect]
     Indication: GENERAL SYMPTOM
     Route: 048

REACTIONS (13)
  - ANHEDONIA [None]
  - ANXIETY [None]
  - CARDIAC FAILURE CONGESTIVE [None]
  - CARDIOVASCULAR DISORDER [None]
  - CEREBROVASCULAR ACCIDENT [None]
  - DEEP VEIN THROMBOSIS [None]
  - HYPERTENSIVE CARDIOMYOPATHY [None]
  - MYOCARDIAL INFARCTION [None]
  - NON-CARDIAC CHEST PAIN [None]
  - PULMONARY EMBOLISM [None]
  - RENAL DISORDER [None]
  - RENAL FAILURE [None]
  - THROMBOSIS [None]
